FAERS Safety Report 9049842 (Version 1)
Quarter: 2013Q1

REPORT INFORMATION
  Report Type: Spontaneous
  Country: US (occurrence: US)
  Receive Date: 20130205
  Receipt Date: 20130205
  Transmission Date: 20140127
  Serious: No
  Sender: FDA-Public Use
  Company Number: US-009507513-1301USA013620

PATIENT
  Sex: Female

DRUGS (1)
  1. DULERA [Suspect]
     Dosage: 1 DF, BID
     Route: 055

REACTIONS (4)
  - Device malfunction [Unknown]
  - Underdose [Unknown]
  - Medication error [Unknown]
  - No adverse event [Unknown]
